FAERS Safety Report 6016888-7 (Version None)
Quarter: 2008Q4

REPORT INFORMATION
  Report Type: 
  Country: None (occurrence: None)
  Receive Date: 20081219
  Receipt Date: 20081216
  Transmission Date: 20090506
  Serious: Yes (Death)
  Sender: FDA-Public Use
  Company Number: 2008US003197

PATIENT
  Age: 17 Year
  Sex: Female

DRUGS (6)
  1. PROGRAF [Suspect]
     Indication: LUNG TRANSPLANT
  2. AZATHIOPRINE [Suspect]
     Indication: LUNG TRANSPLANT
  3. METHYLPREDNISOLONE 16MG TAB [Suspect]
     Indication: LUNG TRANSPLANT
  4. ACYCLOVIR [Concomitant]
  5. SULFAMETHOXAZOLE AND TRIMETHOPRIM [Concomitant]
  6. ITRACONAZOLE [Concomitant]

REACTIONS (1)
  - SEPSIS [None]
